FAERS Safety Report 5910469-9 (Version None)
Quarter: 2008Q4

REPORT INFORMATION
  Report Type: 
  Country: None (occurrence: None)
  Receive Date: 20081006
  Receipt Date: 20081006
  Transmission Date: 20090506
  Serious: Yes (Life-Threatening)
  Sender: FDA-Public Use
  Company Number: None

PATIENT
  Age: 36 Year
  Sex: Female
  Weight: 43.0917 kg

DRUGS (1)
  1. TETRACYCLINE [Suspect]
     Indication: DERMAL CYST
     Dosage: 1 CAPSULE 3 TIMES A DAY PO
     Route: 048

REACTIONS (7)
  - ABASIA [None]
  - DRUG HYPERSENSITIVITY [None]
  - DYSARTHRIA [None]
  - DYSPNOEA [None]
  - HEADACHE [None]
  - ORAL PAIN [None]
  - TREMOR [None]
